FAERS Safety Report 7512578-X (Version None)
Quarter: 2011Q2

REPORT INFORMATION
  Report Type: 
  Country: None (occurrence: None)
  Receive Date: 20110531
  Receipt Date: 20110523
  Transmission Date: 20111010
  Serious: Yes (Other)
  Sender: FDA-Public Use
  Company Number: FR-ROCHE-779289

PATIENT

DRUGS (2)
  1. COPEGUS [Suspect]
     Dosage: ROUTE, DOSE AND FREQUENCY WAS NOT REPORTED.
     Route: 065
  2. PEGASYS [Suspect]
     Dosage: DOSE, ROUTE AND FREQUENCY WAS NOT REPORTED.
     Route: 065

REACTIONS (1)
  - DELIRIUM [None]
